FAERS Safety Report 11323766 (Version 1)
Quarter: 2015Q3

REPORT INFORMATION
  Report Type: Spontaneous
  Country: US (occurrence: None)
  Receive Date: 20150729
  Receipt Date: 20150729
  Transmission Date: 20151125
  Serious: Yes (Hospitalization)
  Sender: FDA-Public Use
  Company Number: None

PATIENT
  Age: 79 Year
  Sex: Female

DRUGS (15)
  1. QUETIAPINE [Concomitant]
     Active Substance: QUETIAPINE
  2. CITALOPRAM [Concomitant]
     Active Substance: CITALOPRAM HYDROBROMIDE
  3. CYCLOBENZAPRINE [Concomitant]
     Active Substance: CYCLOBENZAPRINE
  4. POLYETHYLENE [Concomitant]
     Active Substance: HIGH DENSITY POLYETHYLENE
  5. ENOXAPARIN [Concomitant]
     Active Substance: ENOXAPARIN
  6. CARBIDOPA AND LEVODOPA [Concomitant]
     Active Substance: CARBIDOPA\LEVODOPA
  7. CLONAZEPAM. [Concomitant]
     Active Substance: CLONAZEPAM
  8. DOCUSATE [Concomitant]
     Active Substance: DOCUSATE
  9. GABAPENTIN. [Concomitant]
     Active Substance: GABAPENTIN
  10. VITAMIN D [Concomitant]
     Active Substance: CHOLECALCIFEROL
  11. LANSOPRAZOLE. [Concomitant]
     Active Substance: LANSOPRAZOLE
  12. TRAMADOL. [Concomitant]
     Active Substance: TRAMADOL
  13. VITAMIN C [Concomitant]
     Active Substance: ASCORBIC ACID
  14. GLYCOL 3350 [Concomitant]
  15. VANCOMYCIN [Suspect]
     Active Substance: VANCOMYCIN
     Indication: CELLULITIS
     Dosage: 1 G
     Route: 042
     Dates: start: 20141112, end: 20141202

REACTIONS (3)
  - Breast swelling [None]
  - Red man syndrome [None]
  - Rash generalised [None]

NARRATIVE: CASE EVENT DATE: 20141202
